FAERS Safety Report 6374098-8 (Version None)
Quarter: 2009Q3

REPORT INFORMATION
  Report Type: 
  Country: None (occurrence: None)
  Receive Date: 20090924
  Receipt Date: 20090629
  Transmission Date: 20100115
  Serious: Yes (Other)
  Sender: FDA-Public Use
  Company Number: US-ASTRAZENECA-2009UW17939

PATIENT
  Age: 55 Year
  Sex: Male

DRUGS (3)
  1. SEROQUEL [Suspect]
     Route: 048
  2. LAMICTAL [Suspect]
  3. LEXAPRO [Suspect]

REACTIONS (1)
  - BLOOD GLUCOSE INCREASED [None]
